FAERS Safety Report 14007785 (Version 5)
Quarter: 2018Q1

REPORT INFORMATION
  Report Type: Spontaneous
  Country: US (occurrence: US)
  Receive Date: 20170925
  Receipt Date: 20180124
  Transmission Date: 20180508
  Serious: Yes (Other)
  Sender: FDA-Public Use
  Company Number: US-LEXICON PHARMACEUTICALS, INC-17-1606-00892

PATIENT
  Age: 65 Year
  Sex: Male
  Weight: 128.03 kg

DRUGS (17)
  1. TENORMIN [Concomitant]
     Active Substance: ATENOLOL
     Route: 048
  2. TELOTRISTAT ETHYL [Suspect]
     Active Substance: TELOTRISTAT ETHYL
     Indication: CARCINOID SYNDROME
     Route: 048
     Dates: start: 20170822, end: 20170910
  3. NEXIUM [Concomitant]
     Active Substance: ESOMEPRAZOLE MAGNESIUM
     Indication: GASTROOESOPHAGEAL REFLUX DISEASE
  4. TELOTRISTAT ETHYL [Suspect]
     Active Substance: TELOTRISTAT ETHYL
     Indication: DIARRHOEA
     Route: 048
     Dates: start: 20171002, end: 2017
  5. NORVASC [Concomitant]
     Active Substance: AMLODIPINE BESYLATE
     Route: 048
  6. QNASL CHILDRENS [Concomitant]
     Route: 045
  7. NITRO-DUR [Concomitant]
     Active Substance: NITROGLYCERIN
  8. LOZOL [Concomitant]
     Active Substance: INDAPAMIDE
     Dosage: 2.5 TABLET
  9. OCTREOTIDE ACETATE. [Concomitant]
     Active Substance: OCTREOTIDE ACETATE
     Dosage: 1 ML
  10. ZANTAC [Concomitant]
     Active Substance: RANITIDINE HYDROCHLORIDE
     Indication: GASTROOESOPHAGEAL REFLUX DISEASE
     Route: 048
  11. METFORMIN [Concomitant]
     Active Substance: METFORMIN HYDROCHLORIDE
     Indication: BLOOD GLUCOSE INCREASED
     Route: 048
  12. LISINOPRIL. [Concomitant]
     Active Substance: LISINOPRIL
     Route: 048
  13. SOMATULINE [Concomitant]
     Active Substance: LANREOTIDE ACETATE
  14. METAMUCIL [Concomitant]
     Active Substance: PLANTAGO SEED
     Dosage: 1-3 PACKETS DAILY
     Route: 048
  15. TELOTRISTAT ETHYL [Suspect]
     Active Substance: TELOTRISTAT ETHYL
     Route: 048
     Dates: start: 2017, end: 2017
  16. VITAMIN D3 [Concomitant]
     Active Substance: CHOLECALCIFEROL
     Route: 048
  17. VENTOLIN HFA [Concomitant]
     Active Substance: ALBUTEROL SULFATE
     Indication: BRONCHOSPASM
     Dosage: 1-2 PUFFS Q8H PRN ALLERGIC BRONCHOCONSTRICTION

REACTIONS (18)
  - Constipation [Unknown]
  - Dyspnoea [Not Recovered/Not Resolved]
  - Chest discomfort [Not Recovered/Not Resolved]
  - Dizziness postural [Not Recovered/Not Resolved]
  - Abdominal pain upper [Recovered/Resolved]
  - Pollakiuria [Unknown]
  - Fatigue [Unknown]
  - Abdominal pain lower [Recovered/Resolved]
  - Flank pain [Not Recovered/Not Resolved]
  - Blood glucose increased [Unknown]
  - Serum ferritin increased [Unknown]
  - Memory impairment [Unknown]
  - Wheezing [Unknown]
  - Diverticulitis [Recovered/Resolved]
  - Muscle spasms [Not Recovered/Not Resolved]
  - Pain in extremity [Unknown]
  - Off label use [Not Recovered/Not Resolved]
  - Colonoscopy [Recovered/Resolved]

NARRATIVE: CASE EVENT DATE: 2017
